FAERS Safety Report 9769182 (Version 2)
Quarter: 2013Q4

REPORT INFORMATION
  Report Type: Report from Study
  Country: DE (occurrence: DE)
  Receive Date: 20131218
  Receipt Date: 20131218
  Transmission Date: 20140711
  Serious: Yes (Hospitalization)
  Sender: FDA-Public Use
  Company Number: DE-ABBVIE-12P-062-1010779-00

PATIENT
  Sex: Male

DRUGS (6)
  1. HUMIRA [Suspect]
     Indication: CROHN^S DISEASE
     Route: 058
     Dates: start: 20111115, end: 201207
  2. HUMIRA [Suspect]
     Route: 058
     Dates: start: 2012, end: 201209
  3. HUMIRA [Suspect]
     Route: 058
     Dates: start: 2012, end: 20121112
  4. HUMIRA [Suspect]
     Route: 058
     Dates: start: 20130323, end: 201312
  5. HUMIRA [Suspect]
     Route: 058
     Dates: start: 201312
  6. ARIXTRA [Concomitant]
     Indication: PRODUCT USED FOR UNKNOWN INDICATION

REACTIONS (4)
  - Fistula [Recovered/Resolved]
  - Drug ineffective [Not Recovered/Not Resolved]
  - Frequent bowel movements [Unknown]
  - Iron deficiency [Recovering/Resolving]
